FAERS Safety Report 9346914 (Version 1)
Quarter: 2013Q2

REPORT INFORMATION
  Report Type: Report from Study
  Country: BR (occurrence: BR)
  Receive Date: 20130613
  Receipt Date: 20130613
  Transmission Date: 20140414
  Serious: Yes (Hospitalization, Other)
  Sender: FDA-Public Use
  Company Number: PHHY2013BR060294

PATIENT
  Sex: Male

DRUGS (3)
  1. RASILEZ [Suspect]
     Indication: COAGULOPATHY
     Dosage: 300 MG, QD
     Dates: start: 201201
  2. RASILEZ [Suspect]
     Indication: CARDIOVASCULAR DISORDER
  3. RASILEZ [Suspect]
     Indication: OFF LABEL USE

REACTIONS (1)
  - Cerebrovascular accident [Recovered/Resolved]
